FAERS Safety Report 8283965-X (Version None)
Quarter: 2012Q2

REPORT INFORMATION
  Report Type: 
  Country: None (occurrence: None)
  Receive Date: 20120413
  Receipt Date: 20110627
  Transmission Date: 20120825
  Serious: No
  Sender: FDA-Public Use
  Company Number: US-ASTRAZENECA-2011SE38640

PATIENT
  Age: 76 Year
  Sex: Male

DRUGS (5)
  1. ASPIRIN [Concomitant]
  2. NEXIUM [Suspect]
     Indication: ABDOMINAL PAIN UPPER
     Route: 048
     Dates: start: 20110624, end: 20110625
  3. NORVASC [Concomitant]
     Indication: HYPERTENSION
  4. GLIPIZIDE [Concomitant]
     Indication: DIABETES MELLITUS
  5. LANTUS [Concomitant]
     Indication: DIABETES MELLITUS

REACTIONS (5)
  - OFF LABEL USE [None]
  - SELF-INJURIOUS IDEATION [None]
  - READING DISORDER [None]
  - COLONOSCOPY [None]
  - VERTIGO [None]
